FAERS Safety Report 21543437 (Version 1)
Quarter: 2022Q4

REPORT INFORMATION
  Report Type: Spontaneous
  Country: JP (occurrence: JP)
  Receive Date: 20221102
  Receipt Date: 20221102
  Transmission Date: 20230112
  Serious: Yes (Other)
  Sender: FDA-Public Use
  Company Number: JP-MLMSERVICE-20211123-3235540-1

PATIENT
  Age: 70 Year
  Sex: Female

DRUGS (13)
  1. METHOTREXATE SODIUM [Suspect]
     Active Substance: METHOTREXATE SODIUM
     Indication: Rheumatoid arthritis
     Dosage: UNK
  2. SULFASALAZINE [Suspect]
     Active Substance: SULFASALAZINE
     Indication: Rheumatoid arthritis
     Dosage: UNK
  3. PREDNISONE [Suspect]
     Active Substance: PREDNISONE
     Indication: Rheumatoid arthritis
     Dosage: 10.0 MG, 1X/DAY
     Dates: start: 201406
  4. PREDNISONE [Suspect]
     Active Substance: PREDNISONE
     Dosage: 9.0 MG, 1X/DAY
     Dates: start: 201408
  5. PREDNISONE [Suspect]
     Active Substance: PREDNISONE
     Dosage: 7.0 MG, 1X/DAY
     Dates: start: 201410
  6. PREDNISONE [Suspect]
     Active Substance: PREDNISONE
     Dosage: 6.5 MG, 1X/DAY
     Dates: start: 201411
  7. PREDNISONE [Suspect]
     Active Substance: PREDNISONE
     Dosage: 6.0 MG, 1X/DAY
     Dates: start: 201412
  8. PREDNISONE [Suspect]
     Active Substance: PREDNISONE
     Dosage: 5.0 MG, 1X/DAY
     Dates: start: 201502
  9. PREDNISONE [Suspect]
     Active Substance: PREDNISONE
     Dosage: 4.0 MG, 1X/DAY
     Dates: start: 201811
  10. PREDNISONE [Suspect]
     Active Substance: PREDNISONE
     Dosage: 3.0 MG, 1X/DAY
     Dates: start: 201901
  11. PREDNISONE [Suspect]
     Active Substance: PREDNISONE
     Dosage: 2.0 MG, 1X/DAY
     Dates: start: 201903
  12. PREDNISONE [Suspect]
     Active Substance: PREDNISONE
     Dosage: 1.0 MG, 1X/DAY
     Dates: start: 201905
  13. PREDNISONE [Suspect]
     Active Substance: PREDNISONE
     Dosage: 0.5 MG, 1X/DAY
     Dates: start: 201906, end: 201908

REACTIONS (2)
  - Chronic kidney disease [Unknown]
  - Abdominal discomfort [Unknown]
